FAERS Safety Report 15042453 (Version 1)
Quarter: 2018Q2

REPORT INFORMATION
  Report Type: Spontaneous
  Country: US (occurrence: US)
  Receive Date: 20180621
  Receipt Date: 20180621
  Transmission Date: 20180711
  Serious: Yes (Hospitalization, Other)
  Sender: FDA-Public Use
  Company Number: US-AUROBINDO-AUR-APL-2018-032213

PATIENT
  Age: 56 Year
  Sex: Male

DRUGS (1)
  1. AMPICILLIN AND SALBUCTAM [Suspect]
     Active Substance: AMPICILLIN SODIUM\SULBACTAM SODIUM
     Indication: ANIMAL BITE
     Dosage: ()
     Route: 042

REACTIONS (2)
  - Leukocytosis [Unknown]
  - Tubulointerstitial nephritis [Recovering/Resolving]
